FAERS Safety Report 20884465 (Version 1)
Quarter: 2022Q2

REPORT INFORMATION
  Report Type: Spontaneous
  Country: US (occurrence: None)
  Receive Date: 20220527
  Receipt Date: 20220527
  Transmission Date: 20220721
  Serious: Yes (Hospitalization)
  Sender: FDA-Public Use
  Company Number: None

PATIENT
  Age: 60 Year
  Sex: Male
  Weight: 94 kg

DRUGS (2)
  1. BENDAMUSTINE HYDROCHLORIDE [Suspect]
     Active Substance: BENDAMUSTINE HYDROCHLORIDE
     Dates: end: 20220422
  2. RITUXIMAB [Suspect]
     Active Substance: RITUXIMAB
     Dates: end: 20220421

REACTIONS (8)
  - Flank pain [None]
  - Leukocytosis [None]
  - Infection [None]
  - Tachycardia [None]
  - Hyperlactacidaemia [None]
  - Diarrhoea [None]
  - Fatigue [None]
  - Disease progression [None]

NARRATIVE: CASE EVENT DATE: 20220525
